FAERS Safety Report 16909881 (Version 1)
Quarter: 2019Q4

REPORT INFORMATION
  Report Type: Spontaneous
  Country: SE (occurrence: SE)
  Receive Date: 20191011
  Receipt Date: 20191011
  Transmission Date: 20200122
  Serious: Yes (Other)
  Sender: FDA-Public Use
  Company Number: SE-GALDERMA-SE19061325

PATIENT
  Sex: Male

DRUGS (5)
  1. TETRALYSAL (LYMECYCLINE) [Suspect]
     Active Substance: LYMECYCLINE
     Indication: ROSACEA
     Route: 048
  2. LOCOID [Concomitant]
     Active Substance: HYDROCORTISONE BUTYRATE
     Indication: ROSACEA
     Dosage: AS NEEDED
     Route: 061
     Dates: end: 2019
  3. ERYMAX [Concomitant]
     Active Substance: ERYTHROMYCIN
     Indication: ROSACEA
     Route: 048
  4. MIRVASO [Suspect]
     Active Substance: BRIMONIDINE TARTRATE
     Indication: ROSACEA
     Dosage: 0.33%
     Route: 061
     Dates: end: 20190923
  5. FUCIDIN [Concomitant]
     Active Substance: FUSIDATE SODIUM
     Indication: ROSACEA
     Dosage: AS NEEDED
     Route: 061
     Dates: end: 2019

REACTIONS (5)
  - Dermatitis [Not Recovered/Not Resolved]
  - Rosacea [Recovered/Resolved]
  - Dermatitis contact [Not Recovered/Not Resolved]
  - Eczema [Not Recovered/Not Resolved]
  - Gastrointestinal disorder [Unknown]
